FAERS Safety Report 12708846 (Version 3)
Quarter: 2016Q3

REPORT INFORMATION
  Report Type: Spontaneous
  Country: US (occurrence: US)
  Receive Date: 20160901
  Receipt Date: 20160923
  Transmission Date: 20161109
  Serious: Yes (Hospitalization)
  Sender: FDA-Public Use
  Company Number: US-B.I. PHARMACEUTICALS,INC./RIDGEFIELD-2016-BI-56081BP

PATIENT
  Age: 88 Year
  Sex: Male
  Weight: 93 kg

DRUGS (17)
  1. NASONEX [Concomitant]
     Active Substance: MOMETASONE FUROATE
     Indication: HYPERSENSITIVITY
     Dosage: 150 MCG
     Route: 050
     Dates: start: 2012
  2. SINGULAIR [Concomitant]
     Active Substance: MONTELUKAST SODIUM
     Indication: HYPERSENSITIVITY
     Dosage: 10 MG
     Route: 048
     Dates: start: 2014
  3. GABAPENTIN. [Concomitant]
     Active Substance: GABAPENTIN
     Indication: POLYNEUROPATHY
     Dosage: 900 MG
     Route: 048
     Dates: start: 20160801
  4. VITAMIN D [Concomitant]
     Active Substance: CHOLECALCIFEROL
     Indication: PROPHYLAXIS
     Dosage: 1666.6667 MG
     Route: 048
     Dates: start: 2010
  5. PROSCAR [Concomitant]
     Active Substance: FINASTERIDE
     Indication: BENIGN PROSTATIC HYPERPLASIA
     Dosage: 5 MG
     Route: 048
     Dates: start: 201511
  6. LOSARTAN. [Concomitant]
     Active Substance: LOSARTAN
     Indication: HYPERTENSION
     Dosage: 50 MG
     Route: 048
     Dates: start: 20160308
  7. CRESTOR [Concomitant]
     Active Substance: ROSUVASTATIN CALCIUM
     Indication: HYPERLIPIDAEMIA
     Dosage: 20 MG
     Route: 048
     Dates: start: 20160316
  8. WELLBUTRIN [Concomitant]
     Active Substance: BUPROPION HYDROCHLORIDE
     Indication: DEPRESSION
     Dosage: 150 MG
     Route: 048
     Dates: start: 201505
  9. AMITIZA [Concomitant]
     Active Substance: LUBIPROSTONE
     Indication: CONSTIPATION
     Dosage: 48 MCG
     Route: 048
     Dates: start: 201106
  10. LIDODERM [Concomitant]
     Active Substance: LIDOCAINE
     Indication: POLYNEUROPATHY
     Dosage: 100 MG
     Route: 065
     Dates: start: 20160713
  11. ECONOPRED PLUS [Concomitant]
     Active Substance: PREDNISOLONE ACETATE
     Indication: GLAUCOMA
     Dosage: 1 PERCENT; ROUTE: OPHTHALMIC
     Route: 050
     Dates: start: 201410
  12. XANAX [Concomitant]
     Active Substance: ALPRAZOLAM
     Indication: ANXIETY
     Dosage: 1.5 MG
     Route: 048
     Dates: start: 2010
  13. BENTYL [Concomitant]
     Active Substance: DICYCLOMINE HYDROCHLORIDE
     Indication: IRRITABLE BOWEL SYNDROME
     Route: 048
     Dates: start: 2010
  14. CLOPIDOGREL [Concomitant]
     Active Substance: CLOPIDOGREL BISULFATE
     Indication: PERIPHERAL VASCULAR DISORDER
     Dosage: 75 MG
     Route: 048
     Dates: start: 20160306
  15. OFEV [Suspect]
     Active Substance: NINTEDANIB
     Indication: PULMONARY FIBROSIS
     Dosage: 300 MG
     Route: 048
     Dates: start: 201608, end: 20160815
  16. OMEPRAZOLE. [Concomitant]
     Active Substance: OMEPRAZOLE
     Indication: GASTRITIS
     Dosage: 40 MG
     Route: 048
     Dates: start: 201205
  17. LORATADINE. [Concomitant]
     Active Substance: LORATADINE
     Indication: HYPERSENSITIVITY
     Dosage: 10 MG
     Route: 048
     Dates: start: 2012

REACTIONS (3)
  - Vomiting [Recovered/Resolved]
  - Nausea [Recovered/Resolved]
  - Abdominal pain [Recovered/Resolved]

NARRATIVE: CASE EVENT DATE: 20160813
